FAERS Safety Report 6991508-3 (Version None)
Quarter: 2010Q3

REPORT INFORMATION
  Report Type: 
  Country: None (occurrence: None)
  Receive Date: 20100917
  Receipt Date: 20100908
  Transmission Date: 20110219
  Serious: Yes (Hospitalization)
  Sender: FDA-Public Use
  Company Number: US-BIOGENIDEC-2010BI027787

PATIENT
  Age: 58 Year
  Sex: Female
  Weight: 65 kg

DRUGS (10)
  1. TYSABRI [Suspect]
     Indication: MULTIPLE SCLEROSIS
     Route: 042
     Dates: start: 20090304
  2. PREMARIN [Concomitant]
     Indication: HORMONE REPLACEMENT THERAPY
     Route: 048
     Dates: start: 20070101
  3. CELEXA [Concomitant]
     Indication: DEPRESSION
     Route: 048
  4. ADVIL LIQUI-GELS [Concomitant]
  5. DARVOCET [Concomitant]
  6. PROPRANOLOL SR [Concomitant]
     Indication: HEADACHE
     Dates: start: 20070101, end: 20090409
  7. FLEXERIL [Concomitant]
     Dates: start: 20090401, end: 20090903
  8. ULTRACET [Concomitant]
     Dates: start: 20100729
  9. ALBUTEROL [Concomitant]
     Indication: DYSPNOEA
     Route: 055
  10. VITAMINS [Concomitant]

REACTIONS (4)
  - FATIGUE [None]
  - INSOMNIA [None]
  - MUSCULOSKELETAL PAIN [None]
  - ROTATOR CUFF SYNDROME [None]
